FAERS Safety Report 22629440 (Version 1)
Quarter: 2023Q2

REPORT INFORMATION
  Report Type: Spontaneous
  Country: US (occurrence: US)
  Receive Date: 20230622
  Receipt Date: 20230622
  Transmission Date: 20230722
  Serious: Yes (Other)
  Sender: FDA-Public Use
  Company Number: US-GILEAD-2023-0633423

PATIENT
  Age: 28 Year
  Sex: Male

DRUGS (9)
  1. EMTRICITABINE\TENOFOVIR [Suspect]
     Active Substance: EMTRICITABINE\TENOFOVIR
     Indication: HIV infection
     Route: 065
  2. DOLUTEGRAVIR [Concomitant]
     Active Substance: DOLUTEGRAVIR
  3. LAMIVUDINE [Concomitant]
     Active Substance: LAMIVUDINE
  4. SULFAMETHOXAZOLE\TRIMETHOPRIM [Concomitant]
     Active Substance: SULFAMETHOXAZOLE\TRIMETHOPRIM
  5. FLUCONAZOLE [Concomitant]
     Active Substance: FLUCONAZOLE
  6. RIFAMPIN [Concomitant]
     Active Substance: RIFAMPIN
  7. ISONIAZID [Concomitant]
     Active Substance: ISONIAZID
  8. PYRAZINAMIDE [Concomitant]
     Active Substance: PYRAZINAMIDE
  9. ETHAMBUTOL [Concomitant]
     Active Substance: ETHAMBUTOL HYDROCHLORIDE

REACTIONS (2)
  - Tuberculosis [Recovered/Resolved]
  - Immune reconstitution inflammatory syndrome [Recovered/Resolved]
